FAERS Safety Report 15455286 (Version 1)
Quarter: 2018Q4

REPORT INFORMATION
  Report Type: Spontaneous
  Country: BE (occurrence: BE)
  Receive Date: 20181002
  Receipt Date: 20181002
  Transmission Date: 20190204
  Serious: Yes (Other)
  Sender: FDA-Public Use
  Company Number: PHHY2018BE111894

PATIENT
  Age: 71 Year
  Sex: Female
  Weight: 47 kg

DRUGS (3)
  1. ETOPOSIDE. [Suspect]
     Active Substance: ETOPOSIDE
     Indication: SMALL CELL LUNG CANCER
     Dosage: UNK UNK, CYCLIC (CYCLE 3 CISPLATINUM-ETOPOSIDE (75 PERCENT))
     Route: 065
  2. CISPLATIN. [Suspect]
     Active Substance: CISPLATIN
     Indication: SMALL CELL LUNG CANCER
     Dosage: UNK UNK, CYCLIC (CYCLE 3 CISPLATINUM-ETOPOSIDE (75 PERCENT))
     Route: 065
  3. CARBOPLATIN. [Suspect]
     Active Substance: CARBOPLATIN
     Indication: SMALL CELL LUNG CANCER
     Dosage: UNK UNK, CYCLIC, INITIALLY 2 CYCLES OF CARBOPLATINUM (AT 75 PERCENT)
     Route: 065

REACTIONS (3)
  - Malignant neoplasm progression [Unknown]
  - Metastases to liver [Unknown]
  - Pancytopenia [Not Recovered/Not Resolved]

NARRATIVE: CASE EVENT DATE: 201704
